FAERS Safety Report 20048639 (Version 7)
Quarter: 2022Q1

REPORT INFORMATION
  Report Type: Report from Study
  Country: US (occurrence: US)
  Receive Date: 20211109
  Receipt Date: 20220118
  Transmission Date: 20220423
  Serious: No
  Sender: FDA-Public Use
  Company Number: US-NOVARTISTESTPH-NVSC2021US256256

PATIENT
  Age: 43 Year
  Sex: Male
  Weight: 99.769 kg

DRUGS (5)
  1. TREPROSTINIL [Suspect]
     Active Substance: TREPROSTINIL
     Indication: Pulmonary arterial hypertension
     Dosage: 0.120 ?G/KG
     Route: 058
     Dates: start: 20201012
  2. TREPROSTINIL [Suspect]
     Active Substance: TREPROSTINIL
     Dosage: 100 NG/KG/MIN
     Route: 042
     Dates: start: 20211028
  3. TREPROSTINIL [Suspect]
     Active Substance: TREPROSTINIL
     Dosage: UNK
     Route: 065
  4. ADEMPAS [Concomitant]
     Active Substance: RIOCIGUAT
     Indication: Product used for unknown indication
     Dosage: UNK
     Route: 065
  5. OPSUMIT [Concomitant]
     Active Substance: MACITENTAN
     Indication: Product used for unknown indication
     Dosage: UNK
     Route: 065

REACTIONS (5)
  - Fatigue [Unknown]
  - Nasal congestion [Unknown]
  - Dyspnoea [Unknown]
  - Dyspnoea exertional [Unknown]
  - Ear infection [Unknown]

NARRATIVE: CASE EVENT DATE: 20210801
